FAERS Safety Report 15680767 (Version 1)
Quarter: 2018Q4

REPORT INFORMATION
  Report Type: Spontaneous
  Country: GB (occurrence: GB)
  Receive Date: 20181203
  Receipt Date: 20181203
  Transmission Date: 20190205
  Serious: Yes (Other)
  Sender: FDA-Public Use
  Company Number: GB-LEO PHARMA-315382

PATIENT
  Age: 81 Year
  Sex: Female
  Weight: 48 kg

DRUGS (4)
  1. SALBUTAMOL [Concomitant]
     Active Substance: ALBUTEROL
     Indication: PRODUCT USED FOR UNKNOWN INDICATION
     Route: 055
     Dates: start: 20180821, end: 20180918
  2. PICATO [Suspect]
     Active Substance: INGENOL MEBUTATE
     Indication: ACTINIC KERATOSIS
     Dosage: APPLY, 500MICROGRAMS PER GRAM
     Dates: start: 20181114
  3. KETOCONAZOLE. [Concomitant]
     Active Substance: KETOCONAZOLE
     Indication: DRY SKIN
     Dates: start: 20181107
  4. FUCIDIN (FUSIDIC ACID) [Concomitant]
     Active Substance: FUSIDIC ACID
     Indication: PRODUCT USED FOR UNKNOWN INDICATION
     Dosage: FOR 1 WEEK
     Dates: start: 20181114

REACTIONS (3)
  - Application site oedema [Unknown]
  - Burns second degree [Recovering/Resolving]
  - Application site erythema [Unknown]

NARRATIVE: CASE EVENT DATE: 20181114
